FAERS Safety Report 20533446 (Version 1)
Quarter: 2022Q1

REPORT INFORMATION
  Report Type: Spontaneous
  Country: US (occurrence: US)
  Receive Date: 20220301
  Receipt Date: 20220301
  Transmission Date: 20220423
  Serious: No
  Sender: FDA-Public Use
  Company Number: US-MIRM-000219

PATIENT
  Sex: Female

DRUGS (3)
  1. LIVMARLI [Suspect]
     Active Substance: MARALIXIBAT CHLORIDE
     Route: 048
     Dates: start: 20211022
  2. 1328139 (GLOBALC3Sep19): Rifampin [Concomitant]
  3. 1328777 (GLOBALC3Sep19): Ursodiol [Concomitant]

REACTIONS (3)
  - Constipation [None]
  - Faeces pale [None]
  - Abnormal faeces [None]
